FAERS Safety Report 25282171 (Version 1)
Quarter: 2025Q2

REPORT INFORMATION
  Report Type: Spontaneous
  Country: US (occurrence: US)
  Receive Date: 20250508
  Receipt Date: 20250508
  Transmission Date: 20250716
  Serious: Yes (Other)
  Sender: WELLS PHARMA OF HOUSTON
  Company Number: US-Wells Pharma of Houston-2176365

PATIENT
  Age: 51 Year
  Sex: Female
  Weight: 54.545 kg

DRUGS (1)
  1. NICOTINAMIDE RIBOSIDE CHLORIDE [Suspect]
     Active Substance: NICOTINAMIDE RIBOSIDE CHLORIDE
     Dates: start: 20250422, end: 20250422

REACTIONS (1)
  - Haematuria [Recovered/Resolved]

NARRATIVE: CASE EVENT DATE: 20250422
